FAERS Safety Report 8536008-4 (Version None)
Quarter: 2012Q3

REPORT INFORMATION
  Report Type: 
  Country: None (occurrence: None)
  Receive Date: 20120725
  Receipt Date: 20120724
  Transmission Date: 20120928
  Serious: No
  Sender: FDA-Public Use
  Company Number: PHHY2012LB054649

PATIENT
  Age: 43 Year
  Sex: Female

DRUGS (4)
  1. GASTRIMUT [Concomitant]
     Route: 048
     Dates: start: 20090101
  2. ESCITALOPRAM [Concomitant]
     Dosage: 1 DF, QD
     Route: 048
     Dates: start: 20100101
  3. TASIGNA [Suspect]
     Indication: CHRONIC MYELOID LEUKAEMIA
     Dosage: 400 MG, DAILY
     Route: 048
     Dates: start: 20100101, end: 20120622
  4. TASIGNA [Suspect]
     Dosage: 300 MG, DAILY
     Route: 048
     Dates: start: 20120622

REACTIONS (2)
  - ABDOMINAL DISTENSION [None]
  - THROMBOCYTOPENIA [None]
